FAERS Safety Report 6235967-2 (Version None)
Quarter: 2009Q2

REPORT INFORMATION
  Report Type: 
  Country: None (occurrence: None)
  Receive Date: 20090619
  Receipt Date: 20090614
  Transmission Date: 20091009
  Serious: Yes (Death, Hospitalization)
  Sender: FDA-Public Use
  Company Number: PHHO2009IL06251

PATIENT
  Sex: Male
  Weight: 102 kg

DRUGS (1)
  1. RAD 666 RAD+TAB [Suspect]
     Indication: PROSTATE CANCER
     Dosage: UNK
     Dates: start: 20081124, end: 20090109

REACTIONS (6)
  - ABDOMINAL PAIN [None]
  - DYSURIA [None]
  - ENCEPHALOPATHY [None]
  - HEPATITIS FULMINANT [None]
  - JAUNDICE [None]
  - URINARY TRACT INFECTION [None]
